FAERS Safety Report 18717795 (Version 2)
Quarter: 2021Q1

REPORT INFORMATION
  Report Type: Report from Study
  Country: JP (occurrence: JP)
  Receive Date: 20210108
  Receipt Date: 20210218
  Transmission Date: 20210419
  Serious: Yes (Hospitalization, Other)
  Sender: FDA-Public Use
  Company Number: JP-REGENERON PHARMACEUTICALS, INC.-2021-10060

PATIENT

DRUGS (13)
  1. ISOSORBIDE DINITRATE. [Concomitant]
     Active Substance: ISOSORBIDE DINITRATE
     Indication: PRODUCT USED FOR UNKNOWN INDICATION
     Dosage: UNK
     Route: 065
  2. PRALUENT [Suspect]
     Active Substance: ALIROCUMAB
     Dosage: 75 MILLIGRAM
     Route: 058
     Dates: start: 20190928, end: 20200912
  3. ARTIST [Concomitant]
     Active Substance: CARVEDILOL
     Indication: PRODUCT USED FOR UNKNOWN INDICATION
     Dosage: UNK
     Route: 065
  4. PRALUENT [Suspect]
     Active Substance: ALIROCUMAB
     Indication: TYPE IIA HYPERLIPIDAEMIA
     Dosage: 75 MILLIGRAM, QOW
     Route: 058
     Dates: start: 20180922, end: 20190907
  5. LOXONIN [Concomitant]
     Active Substance: LOXOPROFEN SODIUM
     Indication: PRODUCT USED FOR UNKNOWN INDICATION
     Dosage: UNK
     Route: 062
  6. LOXONIN [Concomitant]
     Active Substance: LOXOPROFEN SODIUM
     Dosage: UNK
     Route: 062
  7. ATOZET [Concomitant]
     Active Substance: ATORVASTATIN CALCIUM\EZETIMIBE
     Indication: TYPE IIA HYPERLIPIDAEMIA
     Dosage: 1 TABLET, QD
     Route: 048
     Dates: start: 20190314
  8. NICORANDIL [Concomitant]
     Active Substance: NICORANDIL
     Indication: PRODUCT USED FOR UNKNOWN INDICATION
     Dosage: UNK
     Route: 065
  9. ATORVASTATIN [ATORVASTATIN CALCIUM TRIHYDRATE] [Concomitant]
     Active Substance: ATORVASTATIN CALCIUM TRIHYDRATE
     Dosage: 20 MG, QD
     Route: 048
     Dates: start: 20190314
  10. PRALUENT [Suspect]
     Active Substance: ALIROCUMAB
     Dosage: 75 MILLIGRAM, SINGLE
     Route: 058
     Dates: start: 20190914, end: 20190914
  11. REBAMIPIDE [Concomitant]
     Active Substance: REBAMIPIDE
     Indication: PROPHYLAXIS
     Dosage: UNK
     Route: 065
  12. ATORVASTATIN [ATORVASTATIN CALCIUM TRIHYDRATE] [Concomitant]
     Active Substance: ATORVASTATIN CALCIUM TRIHYDRATE
     Indication: TYPE IIA HYPERLIPIDAEMIA
     Dosage: 40 MG, QD
     Route: 048
     Dates: start: 20091204, end: 20190313
  13. METFORMIN HYDROCHLORIDE. [Concomitant]
     Active Substance: METFORMIN HYDROCHLORIDE
     Indication: PRODUCT USED FOR UNKNOWN INDICATION
     Dosage: UNK
     Route: 065

REACTIONS (1)
  - Bile duct cancer [Recovering/Resolving]

NARRATIVE: CASE EVENT DATE: 20201209
